FAERS Safety Report 6892445-5 (Version None)
Quarter: 2010Q3

REPORT INFORMATION
  Report Type: 
  Country: None (occurrence: None)
  Receive Date: 20100731
  Receipt Date: 20080521
  Transmission Date: 20110219
  Serious: Yes (Other)
  Sender: FDA-Public Use
  Company Number: US-PFIZER INC-2008044113

PATIENT
  Age: 57 Year
  Sex: Male

DRUGS (4)
  1. NORVASC [Suspect]
     Indication: BLOOD PRESSURE
  2. ALCOHOL [Suspect]
  3. BABYPYRIN [Concomitant]
  4. MULTI-VITAMINS [Concomitant]

REACTIONS (2)
  - HYPOTENSION [None]
  - SOMNOLENCE [None]
